FAERS Safety Report 16647025 (Version 1)
Quarter: 2019Q3

REPORT INFORMATION
  Report Type: Spontaneous
  Country: GB (occurrence: GB)
  Receive Date: 20190730
  Receipt Date: 20190730
  Transmission Date: 20191004
  Serious: Yes (Life-Threatening, Hospitalization)
  Sender: FDA-Public Use
  Company Number: GB-ELI_LILLY_AND_COMPANY-GB201907013546

PATIENT
  Age: 50 Year
  Sex: Female
  Weight: 47 kg

DRUGS (3)
  1. ATENOLOL. [Concomitant]
     Active Substance: ATENOLOL
     Indication: PRODUCT USED FOR UNKNOWN INDICATION
     Dosage: 2 DOSAGE FORM, EACH MORNING
     Dates: start: 20180924
  2. OLANZAPINE. [Suspect]
     Active Substance: OLANZAPINE
     Indication: PRODUCT USED FOR UNKNOWN INDICATION
     Dosage: 5 MG, EACH EVENING
     Route: 065
     Dates: start: 20190308
  3. DIAZEPAM. [Concomitant]
     Active Substance: DIAZEPAM
     Indication: PRODUCT USED FOR UNKNOWN INDICATION
     Dosage: 1 DOSAGE FORM, PRN (THREE TIMES A DAY WHEN NEEDED)
     Route: 065
     Dates: start: 20181015

REACTIONS (2)
  - Hyponatraemia [Recovered/Resolved]
  - Seizure [Unknown]
